FAERS Safety Report 7459506-3 (Version None)
Quarter: 2011Q2

REPORT INFORMATION
  Report Type: 
  Country: None (occurrence: None)
  Receive Date: 20110505
  Receipt Date: 20110428
  Transmission Date: 20111010
  Serious: Yes (Death, Hospitalization, Other)
  Sender: FDA-Public Use
  Company Number: US-JNJFOC-20110401563

PATIENT
  Sex: Female
  Weight: 48.99 kg

DRUGS (3)
  1. PROCHLORPERAZINE TAB [Concomitant]
     Indication: NAUSEA
     Dosage: G-TUBE
     Route: 065
  2. DOXIL [Suspect]
     Indication: OVARIAN CANCER
     Route: 042
  3. DOXIL [Suspect]
     Route: 042

REACTIONS (12)
  - MALAISE [None]
  - PAIN [None]
  - ADVERSE EVENT [None]
  - INCORRECT DOSE ADMINISTERED [None]
  - VOMITING [None]
  - INSOMNIA [None]
  - CATHETER SITE INFECTION [None]
  - MULTI-ORGAN FAILURE [None]
  - OVARIAN CANCER METASTATIC [None]
  - AGITATION [None]
  - ABASIA [None]
  - GASTRIC DISORDER [None]
